FAERS Safety Report 9187959 (Version 5)
Quarter: 2013Q3

REPORT INFORMATION
  Report Type: Report from Study
  Country: AR (occurrence: AR)
  Receive Date: 20130325
  Receipt Date: 20130820
  Transmission Date: 20140515
  Serious: Yes (Life-Threatening, Hospitalization, Other)
  Sender: FDA-Public Use
  Company Number: AR-ROCHE-1193913

PATIENT
  Age: 36 Year
  Sex: Male

DRUGS (6)
  1. RIBAVIRIN [Suspect]
     Indication: CHRONIC HEPATITIS C
     Route: 048
     Dates: start: 20121211, end: 20130114
  2. DIAZEPAM [Suspect]
     Indication: CHRONIC HEPATITIS C
     Route: 065
     Dates: start: 20130125
  3. BLINDED PEG-INTERFERON LAMBDA [Suspect]
     Indication: CHRONIC HEPATITIS C
     Route: 058
     Dates: start: 20121211, end: 20130114
  4. BLINDED DACLATASVIR [Suspect]
     Indication: CHRONIC HEPATITIS C
     Route: 048
     Dates: start: 20121211, end: 20130114
  5. LORAZEPAM [Suspect]
     Indication: CHRONIC HEPATITIS C
     Route: 065
     Dates: start: 20130108
  6. LORAZEPAM [Suspect]
     Route: 065
     Dates: start: 20130125

REACTIONS (2)
  - Suicide attempt [Recovered/Resolved]
  - Jaundice [Unknown]
